FAERS Safety Report 12404358 (Version 3)
Quarter: 2016Q2

REPORT INFORMATION
  Report Type: Report from Study
  Country: DE (occurrence: DE)
  Receive Date: 20160525
  Receipt Date: 20160613
  Transmission Date: 20160815
  Serious: Yes (Life-Threatening, Hospitalization)
  Sender: FDA-Public Use
  Company Number: DE-PFIZER INC-2016263585

PATIENT
  Age: 57 Year
  Sex: Male
  Weight: 84 kg

DRUGS (12)
  1. IDARUBICIN HCL [Suspect]
     Active Substance: IDARUBICIN HYDROCHLORIDE
     Dosage: 24.48 MG, DAILY
     Dates: start: 20160427, end: 20160501
  2. VANCOMYCIN HCL [Suspect]
     Active Substance: VANCOMYCIN HYDROCHLORIDE
     Indication: STAPHYLOCOCCAL INFECTION
     Dosage: 1 G, 1X/DAY 1-0-0
     Route: 042
     Dates: start: 20160508, end: 20160512
  3. ETOPOSIDE. [Suspect]
     Active Substance: ETOPOSIDE
     Dosage: 204.00 MG, DAILY
     Dates: start: 20160427, end: 20160429
  4. ATRA [Suspect]
     Active Substance: TRETINOIN
     Dosage: 30.6 MG, DAILY
     Dates: start: 20160503, end: 20160512
  5. NOXAFIL [Suspect]
     Active Substance: POSACONAZOLE
     Indication: ANTIFUNGAL PROPHYLAXIS
     Dosage: 5 ML, 3X/DAY
     Route: 048
     Dates: start: 20160422, end: 20160501
  6. CYTARABINE. [Suspect]
     Active Substance: CYTARABINE
     Dosage: 204.00 MG, DAILY
     Dates: start: 20160427, end: 20160505
  7. GEMTUZUMAB OZOGAMICIN [Suspect]
     Active Substance: GEMTUZUMAB OZOGAMICIN
     Indication: ACUTE MYELOID LEUKAEMIA
     Dosage: 6.12 MG, DAILY
     Dates: start: 20160428, end: 20160428
  8. STRUCTOKABIVEN [Suspect]
     Active Substance: AMINO ACIDS\DEXTROSE\ELECTROLYTES NOS
     Indication: MALNUTRITION
     Dosage: 1300 KCAL, DAILY (1-0-0)
     Route: 042
     Dates: start: 20160506, end: 20160513
  9. NOXAFIL [Suspect]
     Active Substance: POSACONAZOLE
     Dosage: 5 ML, 3X/DAY
     Route: 048
     Dates: start: 20160504, end: 20160516
  10. MIRTAZAPINE. [Concomitant]
     Active Substance: MIRTAZAPINE
     Indication: ADJUSTMENT DISORDER WITH DEPRESSED MOOD
     Dosage: 15 MG, 1X/DAY 0-0-1
     Route: 048
     Dates: start: 20160503, end: 20160514
  11. VANCOMYCIN HCL [Suspect]
     Active Substance: VANCOMYCIN HYDROCHLORIDE
     Dosage: 1 G, 1X/DAY 1-0-0
     Route: 042
     Dates: start: 20160514, end: 20160516
  12. ZIENAM [Suspect]
     Active Substance: CILASTATIN SODIUM\IMIPENEM
     Indication: PYREXIA
     Dosage: 500 MG 3X/DAY (1-1-1); 1500 MG, DAILY
     Route: 042
     Dates: start: 20160506, end: 20160510

REACTIONS (2)
  - Hyperbilirubinaemia [Unknown]
  - Dermatitis exfoliative [Not Recovered/Not Resolved]

NARRATIVE: CASE EVENT DATE: 20160508
